FAERS Safety Report 19953789 (Version 1)
Quarter: 2021Q4

REPORT INFORMATION
  Report Type: Spontaneous
  Country: US (occurrence: US)
  Receive Date: 20211012
  Receipt Date: 20211012
  Transmission Date: 20220303
  Serious: No
  Sender: FDA-Public Use
  Company Number: None

PATIENT
  Age: 42 Year

DRUGS (2)
  1. EPCLUSA [Suspect]
     Active Substance: SOFOSBUVIR\VELPATASVIR
     Indication: Chronic hepatitis C
     Dosage: ?          OTHER DOSE:ONE TABLET ;
     Route: 048
     Dates: start: 20210820
  2. RIBAVIRIN [Suspect]
     Active Substance: RIBAVIRIN
     Indication: Chronic hepatitis C
     Route: 048
     Dates: start: 20210820

REACTIONS (3)
  - Illness [None]
  - Faeces discoloured [None]
  - Large intestine infection [None]

NARRATIVE: CASE EVENT DATE: 20210922
